FAERS Safety Report 11633835 (Version 1)
Quarter: 2015Q4

REPORT INFORMATION
  Report Type: Spontaneous
  Country: US (occurrence: US)
  Receive Date: 20151015
  Receipt Date: 20151015
  Transmission Date: 20160304
  Serious: Yes (Other)
  Sender: FDA-Public Use
  Company Number: US-ARBOR PHARMACEUTICALS, LLC-US-2015ARB001430

PATIENT

DRUGS (2)
  1. ZYPREXA [Concomitant]
     Active Substance: OLANZAPINE
     Indication: PSYCHOTIC DISORDER
     Dosage: 15 MG, QD
  2. EVEKEO [Suspect]
     Active Substance: AMPHETAMINE SULFATE
     Indication: ATTENTION DEFICIT/HYPERACTIVITY DISORDER
     Dosage: 10 MG, BID
     Route: 048
     Dates: start: 20150929

REACTIONS (15)
  - Diarrhoea [Not Recovered/Not Resolved]
  - Unevaluable event [Unknown]
  - Dysgeusia [Unknown]
  - Dysphonia [Not Recovered/Not Resolved]
  - Abdominal distension [Not Recovered/Not Resolved]
  - Flatulence [Not Recovered/Not Resolved]
  - Headache [Unknown]
  - Abnormal behaviour [Not Recovered/Not Resolved]
  - Depression [Unknown]
  - Flat affect [Not Recovered/Not Resolved]
  - Somnolence [Not Recovered/Not Resolved]
  - Increased appetite [Unknown]
  - Memory impairment [Not Recovered/Not Resolved]
  - Emotional poverty [Not Recovered/Not Resolved]
  - Dysarthria [Unknown]

NARRATIVE: CASE EVENT DATE: 201509
